FAERS Safety Report 5774824-2 (Version None)
Quarter: 2008Q2

REPORT INFORMATION
  Report Type: 
  Country: None (occurrence: None)
  Receive Date: 20080612
  Receipt Date: 20080606
  Transmission Date: 20081010
  Serious: Yes (Death)
  Sender: FDA-Public Use
  Company Number: 163-21880-08060447

PATIENT
  Age: 86 Year
  Sex: Male

DRUGS (5)
  1. REVLIMID [Suspect]
     Indication: MULTIPLE MYELOMA
     Dosage: 10 MG, 1 IN 1 D, ORAL
     Route: 048
     Dates: start: 20070921, end: 20080315
  2. COUMADIN [Concomitant]
  3. PERCOCET [Concomitant]
  4. ARICEPT [Concomitant]
  5. DURAGESIC (FENTANYL) (POLUTICE OR PATCH) [Concomitant]

REACTIONS (1)
  - DEATH [None]
